FAERS Safety Report 8136631 (Version 20)
Quarter: 2013Q1

REPORT INFORMATION
  Report Type: Spontaneous
  Country: CA (occurrence: CA)
  Receive Date: 20110914
  Receipt Date: 20130318
  Transmission Date: 20140127
  Serious: Yes (Hospitalization, Other)
  Sender: FDA-Public Use
  Company Number: PHHY2011CA09140

PATIENT
  Sex: Female

DRUGS (13)
  1. SANDOSTATIN LAR [Suspect]
     Indication: METASTATIC CARCINOID TUMOUR
     Dosage: 20 MG, EVERY 4 WEEKS
     Route: 030
     Dates: start: 20110124
  2. SANDOSTATIN LAR [Suspect]
     Dosage: 20 MG, QMO
     Route: 030
  3. SANDOSTATIN LAR [Suspect]
     Dosage: 20 MG, EVERY 4 WEEKS
     Route: 030
  4. SANDOSTATIN LAR [Suspect]
     Dosage: 20 MG, QMO
     Route: 030
  5. SANDOSTATIN LAR [Suspect]
     Dosage: 20 MG, EVERY FOUR WEEKS
     Route: 030
     Dates: end: 20120222
  6. SANDOSTATIN LAR [Suspect]
     Dosage: 20 MG, ONCE A MONTH
     Route: 030
  7. SANDOSTATIN LAR [Suspect]
     Dosage: 20 MG, EVERY 4 WEEKS
     Route: 030
  8. SANDOSTATIN LAR [Suspect]
     Dosage: 20 MG, EVERY 4 WEEKS
     Route: 030
  9. SANDOSTATIN [Suspect]
     Indication: METASTATIC CARCINOID TUMOUR
     Dosage: 20 MG, ONCE A MONTH
     Route: 058
     Dates: start: 20110120, end: 20110123
  10. SANDOSTATIN [Suspect]
     Dosage: 20 MG, ONCE A MONTH
     Route: 058
     Dates: start: 20110124
  11. DEXAMETHASONE [Concomitant]
     Dosage: UNK UKN, UNK
  12. FENTANYL [Concomitant]
     Dosage: UNK UKN, UNK
  13. DILAUDID [Concomitant]
     Dosage: UNK UKN, UNK
     Route: 058

REACTIONS (23)
  - Renal disorder [Unknown]
  - Pulmonary oedema [Not Recovered/Not Resolved]
  - Pain [Unknown]
  - Abdominal pain [Unknown]
  - Asthenia [Not Recovered/Not Resolved]
  - Dehydration [Recovering/Resolving]
  - Malignant neoplasm progression [Unknown]
  - Spinal compression fracture [Recovering/Resolving]
  - Oedema [Unknown]
  - Fall [Unknown]
  - Syringe issue [Not Recovered/Not Resolved]
  - Local swelling [Not Recovered/Not Resolved]
  - Pneumonia [Unknown]
  - Gait disturbance [Recovered/Resolved]
  - Injection site pain [Recovered/Resolved]
  - Blood pressure increased [Not Recovered/Not Resolved]
  - Dysgeusia [Unknown]
  - Malaise [Unknown]
  - Breakthrough pain [Unknown]
  - Back pain [Unknown]
  - Laceration [Unknown]
  - Limb injury [Unknown]
  - Weight decreased [Unknown]
